FAERS Safety Report 8849570 (Version 5)
Quarter: 2013Q2

REPORT INFORMATION
  Report Type: Spontaneous
  Country: US (occurrence: US)
  Receive Date: 20121019
  Receipt Date: 20130528
  Transmission Date: 20140414
  Serious: Yes (Disabling, Other)
  Sender: FDA-Public Use
  Company Number: US-009507513-1210USA006568

PATIENT
  Sex: Female
  Weight: 68.93 kg

DRUGS (8)
  1. FOSAMAX [Suspect]
     Indication: OSTEOPENIA
     Dosage: 10 MG, QD
     Route: 048
     Dates: start: 1997
  2. FOSAMAX [Suspect]
     Indication: OSTEOPOROSIS
     Dosage: 70 MG, QW
     Route: 048
     Dates: start: 20060226, end: 201203
  3. ALENDRONATE SODIUM [Suspect]
     Indication: OSTEOPENIA
     Dosage: 10 MG, QD
     Route: 048
  4. ALENDRONATE SODIUM [Suspect]
     Indication: OSTEOPOROSIS
  5. CYANOCOBALAMIN [Concomitant]
     Dosage: 1000 MICROGRAM, UNK
     Dates: start: 2007
  6. TEGRETOL [Concomitant]
     Indication: CONVULSION
     Dosage: UNK
     Dates: start: 1986
  7. ALENDRONATE SODIUM [Suspect]
     Dosage: 70 MG, UNK
     Dates: start: 20081203, end: 201112
  8. ALENDRONATE SODIUM [Suspect]
     Dosage: 70 MG, UNK
     Dates: start: 20080407, end: 200812

REACTIONS (31)
  - Femur fracture [Not Recovered/Not Resolved]
  - Skeletal injury [Not Recovered/Not Resolved]
  - Deafness neurosensory [Not Recovered/Not Resolved]
  - Overdose [Unknown]
  - Blood cholesterol increased [Unknown]
  - Uterine dilation and curettage [Unknown]
  - Polypectomy [Unknown]
  - Large intestine polyp [Unknown]
  - Hyponatraemia [Unknown]
  - Cataract operation [Unknown]
  - Neuropathy peripheral [Not Recovered/Not Resolved]
  - Snoring [Not Recovered/Not Resolved]
  - Hyperlipidaemia [Not Recovered/Not Resolved]
  - Carpal tunnel syndrome [Not Recovered/Not Resolved]
  - Leukopenia [Not Recovered/Not Resolved]
  - Blood sodium decreased [Not Recovered/Not Resolved]
  - Haematuria [Not Recovered/Not Resolved]
  - Uterine mass [Unknown]
  - Uterine leiomyoma [Unknown]
  - Renal cyst [Unknown]
  - Intervertebral disc degeneration [Unknown]
  - Rosacea [Unknown]
  - Haemorrhoids [Unknown]
  - Diverticulum [Unknown]
  - Polymyalgia rheumatica [Not Recovered/Not Resolved]
  - Ovarian cystectomy [Unknown]
  - Tonsillectomy [Unknown]
  - Osteoarthritis [Not Recovered/Not Resolved]
  - Fall [Unknown]
  - Back pain [Unknown]
  - Pain in extremity [Not Recovered/Not Resolved]
